FAERS Safety Report 6643600-0 (Version None)
Quarter: 2010Q1

REPORT INFORMATION
  Report Type: 
  Country: None (occurrence: None)
  Receive Date: 20100320
  Receipt Date: 20100310
  Transmission Date: 20100710
  Serious: Yes (Hospitalization)
  Sender: FDA-Public Use
  Company Number: ES-JNJFOC-20100303410

PATIENT
  Age: 46 Year
  Sex: Female

DRUGS (7)
  1. RISPERDAL [Suspect]
     Indication: SCHIZOPHRENIA
     Route: 048
  2. OMEPRAZOLE [Concomitant]
     Indication: PROPHYLAXIS
     Route: 048
  3. IBUPROFEN [Concomitant]
     Indication: PYREXIA
     Route: 048
  4. PARACETAMOL [Concomitant]
     Indication: RESPIRATORY TRACT INFECTION
     Route: 048
  5. NOCTAMID [Concomitant]
     Indication: ANXIETY
     Route: 048
  6. SEROXAT [Concomitant]
     Indication: DEPRESSION
     Route: 048
  7. VALIUM [Concomitant]
     Indication: ANXIETY
     Route: 048

REACTIONS (4)
  - DEPRESSED LEVEL OF CONSCIOUSNESS [None]
  - INAPPROPRIATE ANTIDIURETIC HORMONE SECRETION [None]
  - RENAL FAILURE ACUTE [None]
  - THROMBOCYTOPENIA [None]
